FAERS Safety Report 24033548 (Version 1)
Quarter: 2024Q3

REPORT INFORMATION
  Report Type: Spontaneous
  Country: FR (occurrence: FR)
  Receive Date: 20240701
  Receipt Date: 20240701
  Transmission Date: 20241017
  Serious: No
  Sender: ROCHE
  Company Number: FR-ROCHE-3533400

PATIENT
  Age: 11 Year
  Sex: Female

DRUGS (5)
  1. EVRYSDI [Suspect]
     Active Substance: RISDIPLAM
     Indication: Spinal muscular atrophy
     Dosage: STRENGTH 0.75 MG/ML, EXPIRY DATE: /APR/2025
     Route: 048
     Dates: start: 2020
  2. EVRYSDI [Suspect]
     Active Substance: RISDIPLAM
     Route: 048
  3. ZONEGRAN [Concomitant]
     Active Substance: ZONISAMIDE
  4. VALPROATE SODIUM [Concomitant]
     Active Substance: VALPROATE SODIUM
  5. POLYETHYLENE GLYCOL 4000 [Concomitant]
     Active Substance: POLYETHYLENE GLYCOL 4000

REACTIONS (2)
  - Product physical issue [Unknown]
  - Taste disorder [Recovered/Resolved]
